FAERS Safety Report 6826591-9 (Version None)
Quarter: 2010Q3

REPORT INFORMATION
  Report Type: 
  Country: None (occurrence: None)
  Receive Date: 20100709
  Receipt Date: 20100629
  Transmission Date: 20110219
  Serious: Yes (Life-Threatening, Other)
  Sender: FDA-Public Use
  Company Number: CA-ABBOTT-10P-028-0651944-00

PATIENT
  Age: 66 Year
  Sex: Female

DRUGS (7)
  1. LIPIDIL [Suspect]
     Indication: PRODUCT USED FOR UNKNOWN INDICATION
     Route: 048
     Dates: start: 20050101
  2. CRESTOR [Interacting]
     Indication: PRODUCT USED FOR UNKNOWN INDICATION
  3. ATENOLOL [Concomitant]
     Indication: PRODUCT USED FOR UNKNOWN INDICATION
  4. HYDROCHLOROTHIAZIDE [Concomitant]
     Indication: PRODUCT USED FOR UNKNOWN INDICATION
  5. RASILEZ [Concomitant]
     Indication: PRODUCT USED FOR UNKNOWN INDICATION
  6. SYNTHROID [Concomitant]
     Indication: PRODUCT USED FOR UNKNOWN INDICATION
  7. ZOPICLONE [Concomitant]
     Indication: PRODUCT USED FOR UNKNOWN INDICATION

REACTIONS (5)
  - ARTHRALGIA [None]
  - DRUG INTERACTION [None]
  - DYSKINESIA [None]
  - MYALGIA [None]
  - SLEEP DISORDER [None]
